FAERS Safety Report 23656505 (Version 1)
Quarter: 2024Q1

REPORT INFORMATION
  Report Type: Report from Study
  Country: US (occurrence: US)
  Receive Date: 20240321
  Receipt Date: 20240321
  Transmission Date: 20240409
  Serious: No
  Sender: FDA-Public Use
  Company Number: US-BIOVITRUM-2024-US-004411

PATIENT
  Age: 76 Year
  Sex: Male

DRUGS (1)
  1. VONJO [Suspect]
     Active Substance: PACRITINIB
     Indication: Myelofibrosis
     Dosage: ONCE DAILY
     Route: 048
     Dates: start: 20230606, end: 20240115

REACTIONS (4)
  - Diarrhoea [Unknown]
  - Bone pain [Unknown]
  - Fatigue [Unknown]
  - Contusion [Unknown]
